FAERS Safety Report 9406866 (Version 1)
Quarter: 2013Q3

REPORT INFORMATION
  Report Type: Report from Study
  Country: AR (occurrence: AR)
  Receive Date: 20130718
  Receipt Date: 20130718
  Transmission Date: 20140515
  Serious: Yes (Hospitalization, Other)
  Sender: FDA-Public Use
  Company Number: PHHY2013AR076035

PATIENT
  Sex: Female

DRUGS (1)
  1. DIOVAN D [Suspect]
     Indication: BLOOD PRESSURE ABNORMAL
     Dosage: 1 DF (160/12.5), DAILY
     Route: 048
     Dates: end: 20130714

REACTIONS (5)
  - Pneumonia [Recovering/Resolving]
  - Memory impairment [Unknown]
  - Irritability [Unknown]
  - Malaise [Unknown]
  - Blood pressure increased [Unknown]
